FAERS Safety Report 13097111 (Version 1)
Quarter: 2017Q1

REPORT INFORMATION
  Report Type: Spontaneous
  Country: US (occurrence: US)
  Receive Date: 20170107
  Receipt Date: 20170107
  Transmission Date: 20170428
  Serious: Yes (Hospitalization, Disabling, Other)
  Sender: FDA-Public Use
  Company Number: None

PATIENT
  Age: 53 Year
  Sex: Male
  Weight: 81 kg

DRUGS (14)
  1. LIALDA [Suspect]
     Active Substance: MESALAMINE
     Indication: DISEASE RECURRENCE
     Dosage: ?          QUANTITY:4 TABLET(S);?
     Route: 048
     Dates: start: 20161206, end: 20170105
  2. LIALDA [Suspect]
     Active Substance: MESALAMINE
     Indication: COLITIS ULCERATIVE
     Dosage: ?          QUANTITY:4 TABLET(S);?
     Route: 048
     Dates: start: 20161206, end: 20170105
  3. BUPROPION. [Concomitant]
     Active Substance: BUPROPION
  4. FISH OIL [Concomitant]
     Active Substance: FISH OIL
  5. MULTI-VITAMINS [Concomitant]
  6. VITAMIN C [Concomitant]
     Active Substance: ASCORBIC ACID
  7. LIALDA [Suspect]
     Active Substance: MESALAMINE
     Indication: PROPHYLAXIS
     Dosage: ?          QUANTITY:4 TABLET(S);?
     Route: 048
     Dates: start: 20161206, end: 20170105
  8. ALLEGRA [Concomitant]
     Active Substance: FEXOFENADINE HYDROCHLORIDE
  9. CALCIUM [Concomitant]
     Active Substance: CALCIUM
  10. PREVACID [Concomitant]
     Active Substance: LANSOPRAZOLE
  11. VITAMIN D [Concomitant]
     Active Substance: CHOLECALCIFEROL
  12. VIIBRYD [Concomitant]
     Active Substance: VILAZODONE HYDROCHLORIDE
  13. LORAZEPAM. [Concomitant]
     Active Substance: LORAZEPAM
  14. SINGULAIR [Concomitant]
     Active Substance: MONTELUKAST SODIUM

REACTIONS (9)
  - Similar reaction on previous exposure to drug [None]
  - Syncope [None]
  - Renal pain [None]
  - Nausea [None]
  - Dizziness [None]
  - Screaming [None]
  - Renal failure [None]
  - Dehydration [None]
  - Fall [None]

NARRATIVE: CASE EVENT DATE: 20170105
